FAERS Safety Report 23977640 (Version 3)
Quarter: 2024Q3

REPORT INFORMATION
  Report Type: Report from Study
  Country: JP (occurrence: JP)
  Receive Date: 20240614
  Receipt Date: 20240725
  Transmission Date: 20241017
  Serious: Yes (Hospitalization, Other)
  Sender: ALEXION PHARMACEUTICALS
  Company Number: JP-AstraZeneca-CH-00642978A

PATIENT
  Age: 51 Year
  Sex: Male

DRUGS (15)
  1. ULTOMIRIS [Suspect]
     Active Substance: RAVULIZUMAB-CWVZ
     Indication: Myasthenia gravis
     Dosage: 2700 MILLIGRAM, SINGLE
     Route: 042
     Dates: start: 20221129, end: 20221129
  2. ULTOMIRIS [Suspect]
     Active Substance: RAVULIZUMAB-CWVZ
     Dosage: 3300 MILLIGRAM, Q56
     Route: 042
     Dates: start: 20221213
  3. PREDONINE [Concomitant]
     Active Substance: PREDNISOLONE
     Indication: Myasthenia gravis
     Dosage: 10 MILLIGRAM, QD
     Route: 048
     Dates: start: 20220726, end: 20221213
  4. PREDONINE [Concomitant]
     Active Substance: PREDNISOLONE
     Dosage: 5 MILLIGRAM, QD
     Route: 048
     Dates: start: 20221214
  5. PREDONINE [Concomitant]
     Active Substance: PREDNISOLONE
     Dosage: 4 MILLIGRAM, QD
     Route: 048
     Dates: end: 20230530
  6. PREDONINE [Concomitant]
     Active Substance: PREDNISOLONE
     Dosage: 3 MILLIGRAM, QD
     Route: 048
     Dates: start: 20230531
  7. PREDONINE [Concomitant]
     Active Substance: PREDNISOLONE
     Dosage: 6 MILLIGRAM, QD
     Route: 048
  8. PROGRAF [Concomitant]
     Active Substance: TACROLIMUS
     Indication: Myasthenia gravis
     Dosage: 3 DOSAGE FORM, QD
     Route: 048
     Dates: start: 20210223
  9. MESTINON [Concomitant]
     Active Substance: PYRIDOSTIGMINE BROMIDE
     Indication: Myasthenia gravis
     Dosage: 120 MILLIGRAM, QD
     Route: 048
  10. MESTINON [Concomitant]
     Active Substance: PYRIDOSTIGMINE BROMIDE
     Dosage: 60 MILLIGRAM, BID
     Route: 048
  11. MIGLITOL [Concomitant]
     Active Substance: MIGLITOL
     Indication: Type 2 diabetes mellitus
     Dosage: 100 MILLIGRAM, QD
     Route: 048
  12. DAPAGLIFLOZIN [Concomitant]
     Active Substance: DAPAGLIFLOZIN
     Indication: Type 2 diabetes mellitus
     Dosage: 5 MILLIGRAM, QD
     Route: 048
  13. ROSUVASTATIN [Concomitant]
     Active Substance: ROSUVASTATIN
     Indication: Dyslipidaemia
     Dosage: 2.5 MILLIGRAM, QD
     Route: 048
  14. APIDRA SOLOSTAR [Concomitant]
     Active Substance: INSULIN GLULISINE
     Indication: Type 2 diabetes mellitus
     Dosage: 36E QD
     Route: 058
  15. TRESIBA [Concomitant]
     Active Substance: INSULIN DEGLUDEC
     Indication: Type 2 diabetes mellitus
     Dosage: 20E, QD
     Route: 058

REACTIONS (4)
  - Myasthenia gravis [Not Recovered/Not Resolved]
  - Gastroenteritis [Not Recovered/Not Resolved]
  - Meningitis aseptic [Unknown]
  - Liver disorder [Recovered/Resolved]

NARRATIVE: CASE EVENT DATE: 20230404
